FAERS Safety Report 21286575 (Version 7)
Quarter: 2023Q1

REPORT INFORMATION
  Report Type: Report from Study
  Country: US (occurrence: None)
  Receive Date: 20220902
  Receipt Date: 20230213
  Transmission Date: 20230417
  Serious: Yes (Hospitalization)
  Sender: FDA-Public Use
  Company Number: US-ROCHE-3166980

PATIENT
  Age: 74 Year
  Sex: Female
  Weight: 61.1 kg

DRUGS (32)
  1. MOSUNETUZUMAB [Suspect]
     Active Substance: MOSUNETUZUMAB
     Indication: B-cell lymphoma
     Dosage: DOSE LAST STUDY DRUG ADMIN PRIOR SAE IS 45 MG?DATE OF MOST RECENT DOSE 03/AUG/2022
     Route: 058
     Dates: start: 20220601
  2. POLATUZUMAB VEDOTIN [Suspect]
     Active Substance: POLATUZUMAB VEDOTIN
     Indication: B-cell lymphoma
     Dosage: DOSE LAST STUDY DRUG ADMIN PRIOR SAE IS 112.8 MG?DATE OF MOST RECENT DOSE 03/AUG/2022
     Route: 042
     Dates: start: 20220601
  3. ELAVIL [Concomitant]
     Active Substance: AMITRIPTYLINE HYDROCHLORIDE
     Route: 047
     Dates: start: 1991
  4. LEVOTHYROXINE [Concomitant]
     Active Substance: LEVOTHYROXINE
     Route: 047
     Dates: start: 1997
  5. LEVOTHYROXINE [Concomitant]
     Active Substance: LEVOTHYROXINE
     Route: 048
     Dates: start: 1997
  6. OMEPRAZOLE [Concomitant]
     Active Substance: OMEPRAZOLE
     Dates: start: 2001
  7. AMLODIPINE [Concomitant]
     Active Substance: AMLODIPINE BESYLATE
     Route: 048
     Dates: start: 2016
  8. PRAVASTATIN [Concomitant]
     Active Substance: PRAVASTATIN
     Route: 048
     Dates: start: 202201
  9. ACYCLOVIR [Concomitant]
     Active Substance: ACYCLOVIR
     Route: 048
     Dates: start: 2018
  10. MAGNESIUM OXIDE [Concomitant]
     Active Substance: MAGNESIUM OXIDE
     Route: 048
     Dates: start: 2018
  11. KLOR-CON [Concomitant]
     Active Substance: POTASSIUM CHLORIDE
     Dosage: 20 OTHER
     Route: 048
     Dates: start: 2018
  12. GABAPENTIN [Concomitant]
     Active Substance: GABAPENTIN
     Route: 048
     Dates: start: 20220413
  13. LACTULOSE [Concomitant]
     Active Substance: LACTULOSE
     Route: 048
     Dates: start: 20220413
  14. IMITREX [Concomitant]
     Active Substance: SUMATRIPTAN SUCCINATE
     Route: 048
     Dates: start: 2007
  15. BIOTIN [Concomitant]
     Active Substance: BIOTIN
     Route: 048
     Dates: start: 2010
  16. XTAMPZA ER [Concomitant]
     Active Substance: OXYCODONE
     Route: 048
     Dates: start: 20220708
  17. DIPHENHYDRAMINE [Concomitant]
     Active Substance: DIPHENHYDRAMINE
     Route: 048
     Dates: start: 20220616
  18. DIPHENHYDRAMINE [Concomitant]
     Active Substance: DIPHENHYDRAMINE
     Route: 048
     Dates: start: 20220913, end: 20220915
  19. DIPHENHYDRAMINE [Concomitant]
     Active Substance: DIPHENHYDRAMINE
     Route: 048
     Dates: start: 20220914, end: 20220914
  20. ENOXAPARIN [Concomitant]
     Active Substance: ENOXAPARIN
     Route: 058
     Dates: start: 20220820, end: 20220822
  21. LEVOFLOXACIN [Concomitant]
     Active Substance: LEVOFLOXACIN
     Route: 048
     Dates: start: 20220817
  22. LEVOFLOXACIN [Concomitant]
     Active Substance: LEVOFLOXACIN
     Route: 048
     Dates: start: 20220907, end: 20220914
  23. LORATADINE [Concomitant]
     Active Substance: LORATADINE
     Route: 048
     Dates: start: 20220821
  24. ACETAMINOPHEN [Concomitant]
     Active Substance: ACETAMINOPHEN
     Route: 048
     Dates: start: 20220701
  25. FILGRASTIM [Concomitant]
     Active Substance: FILGRASTIM
     Route: 058
     Dates: start: 20220817, end: 20220817
  26. FILGRASTIM [Concomitant]
     Active Substance: FILGRASTIM
     Route: 058
     Dates: start: 20220821, end: 20220821
  27. DEXAMETHASONE [Concomitant]
     Active Substance: DEXAMETHASONE
     Route: 042
     Dates: start: 20220914, end: 20220914
  28. FAMOTIDINE [Concomitant]
     Active Substance: FAMOTIDINE
     Route: 048
     Dates: start: 20220914, end: 20220914
  29. DAPSONE [Concomitant]
     Active Substance: DAPSONE
     Route: 048
     Dates: start: 20220907
  30. FILGRASTIM SNDZ [Concomitant]
     Route: 058
     Dates: start: 20220907, end: 20220910
  31. FILGRASTIM SNDZ [Concomitant]
     Route: 058
     Dates: start: 20220928, end: 20220930
  32. CEFPODOXIME [Concomitant]
     Active Substance: CEFPODOXIME
     Route: 048
     Dates: start: 20220927, end: 20221005

REACTIONS (1)
  - Pneumonitis [Recovered/Resolved]

NARRATIVE: CASE EVENT DATE: 20220820
